FAERS Safety Report 19920212 (Version 1)
Quarter: 2021Q4

REPORT INFORMATION
  Report Type: Spontaneous
  Country: US (occurrence: US)
  Receive Date: 20211006
  Receipt Date: 20211006
  Transmission Date: 20220304
  Serious: No
  Sender: FDA-Public Use
  Company Number: US-VIIV HEALTHCARE LIMITED-69005

PATIENT
  Sex: Female

DRUGS (2)
  1. SELZENTRY [Suspect]
     Active Substance: MARAVIROC
     Indication: Product used for unknown indication
     Dosage: 150 MG
  2. SELZENTRY [Suspect]
     Active Substance: MARAVIROC
     Dosage: 300 MG

REACTIONS (2)
  - Drug intolerance [Unknown]
  - Circumstance or information capable of leading to medication error [Unknown]
